FAERS Safety Report 7934859-8 (Version None)
Quarter: 2011Q4

REPORT INFORMATION
  Report Type: 
  Country: None (occurrence: None)
  Receive Date: 20111122
  Receipt Date: 20111111
  Transmission Date: 20120403
  Serious: Yes (Death, Hospitalization)
  Sender: FDA-Public Use
  Company Number: PH-BAXTER-2011BH036255

PATIENT
  Sex: Male

DRUGS (1)
  1. DIANEAL [Suspect]
     Indication: PERITONEAL DIALYSIS
     Route: 033

REACTIONS (6)
  - CARDIAC DISORDER [None]
  - MYOCARDIAL INFARCTION [None]
  - DYSARTHRIA [None]
  - ACUTE MYOCARDIAL INFARCTION [None]
  - DISORIENTATION [None]
  - ASTHENIA [None]
